FAERS Safety Report 9416147 (Version 1)
Quarter: 2013Q3

REPORT INFORMATION
  Report Type: Spontaneous
  Country: US (occurrence: None)
  Receive Date: 20130723
  Receipt Date: 20130723
  Transmission Date: 20140515
  Serious: Yes (Hospitalization)
  Sender: FDA-Public Use
  Company Number: None

PATIENT
  Age: 44 Year
  Sex: Male
  Weight: 80.74 kg

DRUGS (1)
  1. LEVOFLOXACIN [Suspect]
     Indication: SINUS OPERATION
     Route: 048

REACTIONS (7)
  - Hypersensitivity [None]
  - Arthralgia [None]
  - Musculoskeletal stiffness [None]
  - Hyperhidrosis [None]
  - Pyrexia [None]
  - Vasculitis [None]
  - Dizziness [None]
